FAERS Safety Report 6090220-5 (Version None)
Quarter: 2009Q1

REPORT INFORMATION
  Report Type: 
  Country: None (occurrence: None)
  Receive Date: 20090224
  Receipt Date: 20090109
  Transmission Date: 20090719
  Serious: No
  Sender: FDA-Public Use
  Company Number: US-ABBOTT-08P-163-0493451-00

PATIENT
  Sex: Female
  Weight: 113.5 kg

DRUGS (11)
  1. SIMCOR [Suspect]
     Indication: BLOOD TRIGLYCERIDES INCREASED
     Dosage: 750/20MG, ONCE DAILY
     Dates: start: 20081001
  2. SIMCOR [Suspect]
     Indication: HIGH DENSITY LIPOPROTEIN DECREASED
  3. THEO-24 [Concomitant]
     Indication: ASTHMA
  4. ADVAIR HFA [Concomitant]
     Indication: ASTHMA
     Dosage: DISC; 150/50MG, ONCE DAILY
  5. VENTOLIN [Concomitant]
     Indication: ASTHMA
  6. ALBUTEROL [Concomitant]
     Indication: ASTHMA
  7. MELOXICAM [Concomitant]
     Indication: NERVE INJURY
  8. CYMBALTA [Concomitant]
     Indication: ANXIOLYTIC THERAPY
  9. JANUMET [Concomitant]
     Indication: DIABETES MELLITUS
  10. METOPROLOL [Concomitant]
     Indication: BLOOD PRESSURE
  11. LISINOPRIL [Concomitant]
     Indication: BLOOD PRESSURE

REACTIONS (6)
  - ERYTHEMA [None]
  - FEELING HOT [None]
  - PANIC REACTION [None]
  - PARAESTHESIA [None]
  - PRURITUS [None]
  - URTICARIA [None]
